FAERS Safety Report 5574476-0 (Version None)
Quarter: 2007Q4

REPORT INFORMATION
  Report Type: 
  Country: None (occurrence: None)
  Receive Date: 20071227
  Receipt Date: 20071218
  Transmission Date: 20080405
  Serious: Yes (Other)
  Sender: FDA-Public Use
  Company Number: AR-ROCHE-537461

PATIENT
  Age: 54 Year
  Weight: 76 kg

DRUGS (6)
  1. MYCOPHENOLATE MOFETIL [Suspect]
     Dosage: FREQUENCY REPORTED AS TWICE.
     Route: 048
     Dates: start: 20060704
  2. MYCOPHENOLATE MOFETIL [Suspect]
     Dosage: FREQUENCY REPORTED AS DAY.
     Route: 048
     Dates: start: 20071210
  3. CYCLOSPORINE [Suspect]
     Dosage: FREQUENCY REPORTED AS TWICE.
     Route: 048
     Dates: start: 20051226
  4. PREDNISONE [Suspect]
     Dosage: FREQUENCY REPORTED AS DAILY.
     Route: 048
     Dates: start: 19910819
  5. EZETIMIBE [Concomitant]
     Dates: start: 20050928
  6. ENALAPRIL [Concomitant]
     Dates: start: 20060405

REACTIONS (1)
  - PAPILLARY THYROID CANCER [None]
